FAERS Safety Report 20001548 (Version 1)
Quarter: 2021Q4

REPORT INFORMATION
  Report Type: Spontaneous
  Country: GB (occurrence: GB)
  Receive Date: 20211027
  Receipt Date: 20211027
  Transmission Date: 20220303
  Serious: Yes (Other)
  Sender: FDA-Public Use
  Company Number: GB-MHRA-EYC 00263278

PATIENT
  Age: 22 Year
  Sex: Female
  Weight: 63.5 kg

DRUGS (3)
  1. SERTRALINE [Suspect]
     Active Substance: SERTRALINE HYDROCHLORIDE
     Indication: Ill-defined disorder
     Dosage: UNK(FROM 50, NOW TO 100MG)
     Route: 048
  2. DROSPIRENONE\ETHINYL ESTRADIOL [Concomitant]
     Active Substance: DROSPIRENONE\ETHINYL ESTRADIOL
     Indication: Ill-defined disorder
     Dosage: UNK
     Route: 065
  3. ISOTRETINOIN [Concomitant]
     Active Substance: ISOTRETINOIN
     Indication: Ill-defined disorder
     Dosage: UNK
     Route: 065

REACTIONS (3)
  - Night sweats [Not Recovered/Not Resolved]
  - Contusion [Not Recovered/Not Resolved]
  - Restless legs syndrome [Not Recovered/Not Resolved]
